FAERS Safety Report 21896979 (Version 1)
Quarter: 2023Q1

REPORT INFORMATION
  Report Type: Spontaneous
  Country: US (occurrence: US)
  Receive Date: 20230123
  Receipt Date: 20230123
  Transmission Date: 20230418
  Serious: Yes (Life-Threatening, Hospitalization)
  Sender: FDA-Public Use
  Company Number: US-STRIDES ARCOLAB LIMITED-2022SP002831

PATIENT
  Age: 16 Year
  Sex: Male

DRUGS (3)
  1. LIDOCAINE [Suspect]
     Active Substance: LIDOCAINE
     Indication: Local anaesthesia
     Dosage: UNK, VISCOUS
     Route: 061
  2. HURRICAINE [Suspect]
     Active Substance: BENZOCAINE
     Indication: Local anaesthesia
     Dosage: UNK
     Route: 061
  3. LIDOCAINE\PRILOCAINE [Suspect]
     Active Substance: LIDOCAINE\PRILOCAINE
     Indication: Local anaesthesia
     Dosage: UNK, EUTETIC MIXTURE OF LOCAL ANAESTHETICS
     Route: 061

REACTIONS (1)
  - Methaemoglobinaemia [Recovered/Resolved]
